FAERS Safety Report 5974798-5 (Version None)
Quarter: 2008Q4

REPORT INFORMATION
  Report Type: 
  Country: None (occurrence: None)
  Receive Date: 20081201
  Receipt Date: 20080207
  Transmission Date: 20090506
  Serious: No
  Sender: FDA-Public Use
  Company Number: US-AMGEN-KDL262925

PATIENT
  Sex: Female

DRUGS (2)
  1. ENBREL [Suspect]
     Indication: PSORIATIC ARTHROPATHY
     Route: 058
     Dates: start: 20070619
  2. SULFASALAZINE [Concomitant]
     Route: 048
     Dates: start: 20080115

REACTIONS (2)
  - SINUSITIS [None]
  - STAPHYLOCOCCAL SKIN INFECTION [None]
